FAERS Safety Report 15401663 (Version 5)
Quarter: 2019Q1

REPORT INFORMATION
  Report Type: Report from Study
  Country: CR (occurrence: CR)
  Receive Date: 20180919
  Receipt Date: 20190228
  Transmission Date: 20190417
  Serious: Yes (Hospitalization, Other)
  Sender: FDA-Public Use
  Company Number: PHHY2018CR096903

PATIENT
  Sex: Female
  Weight: 63 kg

DRUGS (4)
  1. EXFORGE [Suspect]
     Active Substance: AMLODIPINE BESYLATE\VALSARTAN
     Dosage: 1 DF (AMLODIPINE 5 MG, VALSARTAN 320 MG), (IN THE MORNING)
     Route: 065
  2. ATENOLOL. [Concomitant]
     Active Substance: ATENOLOL
     Indication: HYPERTENSION
     Dosage: 2 DF, QD (1 IN THE MORNING AND 1 AT NIGHT)
     Route: 065
     Dates: start: 2015
  3. EXFORGE [Suspect]
     Active Substance: AMLODIPINE BESYLATE\VALSARTAN
     Indication: HYPERTENSION
     Dosage: 1 DF (AMLODIPINE 10 MG, VALSARTAN 320 MG), UNK
     Route: 065
  4. EXFORGE HCT [Suspect]
     Active Substance: AMLODIPINE BESYLATE\HYDROCHLOROTHIAZIDE\VALSARTAN
     Indication: HYPERTENSION
     Dosage: 1 DF (10 MG AMLODIPINE /25 MG HYDROCHLOROTHIAZIDE/320 MG VALSARTAN), UNK
     Route: 065

REACTIONS (10)
  - Pollakiuria [Unknown]
  - Blood pressure abnormal [Unknown]
  - Renal artery stenosis [Unknown]
  - Peritonitis bacterial [Unknown]
  - Blood pressure increased [Unknown]
  - Renal disorder [Unknown]
  - Blood creatinine increased [Unknown]
  - Renal impairment [Recovering/Resolving]
  - Single functional kidney [Unknown]
  - Blood pressure decreased [Unknown]

NARRATIVE: CASE EVENT DATE: 2016
